FAERS Safety Report 7779050-3 (Version None)
Quarter: 2011Q3

REPORT INFORMATION
  Report Type: 
  Country: None (occurrence: None)
  Receive Date: 20110926
  Receipt Date: 20110923
  Transmission Date: 20111222
  Serious: Yes (Other)
  Sender: FDA-Public Use
  Company Number: US-BAYER-2011-090069

PATIENT
  Age: 70 Year
  Sex: Female

DRUGS (20)
  1. FUROSEMIDE [Concomitant]
  2. AVELOX [Suspect]
     Indication: URINARY TRACT INFECTION
  3. AVELOX [Suspect]
     Indication: URINARY TRACT INFECTION
  4. LEVOFLOXACIN [Suspect]
     Indication: PNEUMONIA STREPTOCOCCAL
     Dosage: 750 MG, TID HOSPITAL DAYS 1-7
     Route: 042
  5. LEVOFLOXACIN [Suspect]
     Indication: COLITIS
  6. CLONIDINE [Concomitant]
  7. ZOLPIDEM [Concomitant]
  8. AVELOX [Suspect]
     Indication: PNEUMONIA STREPTOCOCCAL
     Dosage: 400 MG, QD HOSPITAL DAYS 9-13
  9. AVELOX [Suspect]
     Indication: COLITIS
  10. AVELOX [Suspect]
     Indication: COLITIS
  11. HYDRALAZINE HCL [Concomitant]
  12. FILGRASTIM [Concomitant]
     Dosage: FROM HOSPITAL DAY 7-17
  13. LEVOFLOXACIN [Suspect]
     Indication: URINARY TRACT INFECTION
  14. PREDNISONE [Concomitant]
  15. METOPROLOL TARTRATE [Concomitant]
  16. VANCOMYCIN [Concomitant]
     Dosage: HOSPITAL DAYS 7-12
     Route: 048
  17. LEVOTHYROXINE SODIUM [Concomitant]
  18. AVELOX [Suspect]
     Indication: PNEUMONIA STREPTOCOCCAL
     Dosage: 400 MG, ONCE ON HOSPITAL DAY 15
     Route: 048
  19. METRONIDAZOLE [Concomitant]
     Dosage: 500 MG, TID HOSITAL DAYS 1-12
  20. CYCLOSPORINE [Concomitant]

REACTIONS (3)
  - PANCYTOPENIA [None]
  - HALLUCINATION [None]
  - DELIRIUM [None]
